FAERS Safety Report 15935195 (Version 2)
Quarter: 2019Q1

REPORT INFORMATION
  Report Type: Spontaneous
  Country: US (occurrence: US)
  Receive Date: 20190207
  Receipt Date: 20190312
  Transmission Date: 20190417
  Serious: Yes (Other)
  Sender: FDA-Public Use
  Company Number: US-ASTRAZENECA-2018SF23367

PATIENT
  Age: 25592 Day
  Sex: Male
  Weight: 86.2 kg

DRUGS (3)
  1. SYMBICORT [Suspect]
     Active Substance: BUDESONIDE\FORMOTEROL FUMARATE DIHYDRATE
     Indication: CHRONIC OBSTRUCTIVE PULMONARY DISEASE
     Dosage: 160/4.5 MCG, ONE INHALATION, TWICE DAILY, WITH A START DATE OF 3 YEARS AGO
     Route: 055
  2. VENTOLIN [Concomitant]
     Active Substance: ALBUTEROL SULFATE
     Indication: CHRONIC OBSTRUCTIVE PULMONARY DISEASE
     Dosage: 90.0UG AS REQUIRED
     Route: 055
  3. TUDORZA PRESSAIR [Suspect]
     Active Substance: ACLIDINIUM BROMIDE
     Indication: CHRONIC OBSTRUCTIVE PULMONARY DISEASE
     Dosage: 400 MCG, TWO INHALATIONS, TWICE DAILY, WITH A START DATE OF ABOUT A YEAR AND A HALF TO TWO YEARS AGO
     Route: 055

REACTIONS (9)
  - Intentional device misuse [Not Recovered/Not Resolved]
  - Road traffic accident [Unknown]
  - Malaise [Unknown]
  - Product quality issue [Unknown]
  - Product dose omission [Not Recovered/Not Resolved]
  - Vocal cord disorder [Unknown]
  - Pneumonia [Unknown]
  - Off label use [Unknown]
  - Device malfunction [Unknown]

NARRATIVE: CASE EVENT DATE: 20180917
